FAERS Safety Report 8416385-5 (Version None)
Quarter: 2012Q2

REPORT INFORMATION
  Report Type: 
  Country: None (occurrence: None)
  Receive Date: 20120606
  Receipt Date: 20120531
  Transmission Date: 20120825
  Serious: Yes (Other)
  Sender: FDA-Public Use
  Company Number: US-CELGENEUS-163-21880-12060245

PATIENT
  Sex: Female

DRUGS (1)
  1. REVLIMID [Suspect]
     Indication: MULTIPLE MYELOMA
     Dosage: 20 MILLIGRAM
     Route: 048
     Dates: start: 20111110

REACTIONS (5)
  - FATIGUE [None]
  - RENAL IMPAIRMENT [None]
  - FULL BLOOD COUNT DECREASED [None]
  - HEART VALVE INCOMPETENCE [None]
  - OEDEMA PERIPHERAL [None]
